FAERS Safety Report 4486852-8 (Version None)
Quarter: 2004Q3

REPORT INFORMATION
  Report Type: 
  Country: None (occurrence: None)
  Receive Date: 20040921
  Receipt Date: 20030818
  Transmission Date: 20050211
  Serious: Yes (Hospitalization)
  Sender: FDA-Public Use
  Company Number: 163-20785-03080610

PATIENT
  Age: 58 Year
  Sex: Male
  Weight: 132.3 kg

DRUGS (9)
  1. THALOMID [Suspect]
     Indication: MULTIPLE MYELOMA
     Dosage: SEE IMAGE
     Route: 048
     Dates: start: 20030721, end: 20030922
  2. THALOMID [Suspect]
     Indication: MULTIPLE MYELOMA
     Dosage: SEE IMAGE
     Route: 048
     Dates: start: 20030930
  3. ZOLENDRONATE (ZOLENDRONIC ACID) [Suspect]
     Indication: MULTIPLE MYELOMA
     Dosage: 4 MG, MONTHLY, INTRAVENOUS
     Route: 042
     Dates: start: 20030701
  4. DECADRON [Concomitant]
  5. SEPTRA DS [Concomitant]
  6. COUMADIN [Concomitant]
  7. ZANTAC [Concomitant]
  8. LIPITOR [Concomitant]
  9. MAGNESIUM CITRATE (MAGNESIUM CITRATE) [Concomitant]

REACTIONS (4)
  - ASTHENIA [None]
  - CHEST DISCOMFORT [None]
  - DYSPNOEA [None]
  - NEUROPATHY [None]
